FAERS Safety Report 9903163 (Version 1)
Quarter: 2014Q1

REPORT INFORMATION
  Report Type: Spontaneous
  Country: US (occurrence: US)
  Receive Date: 20140217
  Receipt Date: 20140217
  Transmission Date: 20141002
  Serious: No
  Sender: FDA-Public Use
  Company Number: US-ASTRAZENECA-2013SE79060

PATIENT
  Age: 82 Year
  Sex: Female
  Weight: 63.5 kg

DRUGS (6)
  1. ATENOLOL [Suspect]
     Indication: BLOOD PRESSURE
     Route: 048
  2. CRESTOR [Suspect]
     Indication: BLOOD CHOLESTEROL INCREASED
     Route: 048
  3. AMLODIPINE [Concomitant]
     Indication: HYPERTENSION
     Dosage: UNKNOWN DAILY
  4. BUMAX [Concomitant]
     Indication: FLUID RETENTION
  5. CENTRUM SILVER [Concomitant]
     Indication: VITAMIN SUPPLEMENTATION
     Dosage: 1 DAILY
  6. EYE CAP [Concomitant]
     Indication: VITAMIN SUPPLEMENTATION
     Dosage: 1 DAILY

REACTIONS (9)
  - Glaucoma [Unknown]
  - Cataract [Unknown]
  - Osteoporosis [Recovered/Resolved]
  - Blood cholesterol increased [Unknown]
  - Myalgia [Unknown]
  - Heart rate increased [Unknown]
  - Osteopenia [Unknown]
  - Weight decreased [Unknown]
  - Dry eye [Unknown]
